FAERS Safety Report 10326488 (Version 2)
Quarter: 2015Q1

REPORT INFORMATION
  Report Type: Other
  Country: US (occurrence: US)
  Receive Date: 20140720
  Receipt Date: 20150323
  Transmission Date: 20150720
  Serious: Yes (Hospitalization, Other)
  Sender: FDA-Public Use
  Company Number: US-GSKPPD-2014GSK036861

PATIENT
  Age: 65 Year
  Sex: Male

DRUGS (7)
  1. SPIRONOLACTONE. [Concomitant]
     Active Substance: SPIRONOLACTONE
  2. COUMADIN [Concomitant]
     Active Substance: WARFARIN SODIUM
  3. INDERAL [Concomitant]
     Active Substance: PROPRANOLOL HYDROCHLORIDE
     Dates: end: 200510
  4. CARDURA [Concomitant]
     Active Substance: DOXAZOSIN MESYLATE
  5. AVANDIA [Suspect]
     Active Substance: ROSIGLITAZONE MALEATE
     Indication: DIABETES MELLITUS
     Route: 048
     Dates: end: 20051020
  6. LANOXIN [Concomitant]
     Active Substance: DIGOXIN
     Dates: end: 200510
  7. ZESTRIL [Concomitant]
     Active Substance: LISINOPRIL

REACTIONS (1)
  - Cardiac failure congestive [Recovered/Resolved]

NARRATIVE: CASE EVENT DATE: 20051016
